FAERS Safety Report 5873884-8 (Version None)
Quarter: 2008Q3

REPORT INFORMATION
  Report Type: 
  Country: None (occurrence: None)
  Receive Date: 20080905
  Receipt Date: 20080905
  Transmission Date: 20090109
  Serious: Yes (Hospitalization)
  Sender: FDA-Public Use
  Company Number: None

PATIENT
  Age: 63 Year
  Sex: Male

DRUGS (1)
  1. FOSINOPRIL SODIUM [Suspect]
     Dosage: 40 MG EVERY DAY PO
     Route: 048
     Dates: start: 20010423, end: 20080601

REACTIONS (2)
  - ANGIOEDEMA [None]
  - DYSPNOEA [None]
